FAERS Safety Report 7554868-0 (Version None)
Quarter: 2011Q2

REPORT INFORMATION
  Report Type: 
  Country: None (occurrence: None)
  Receive Date: 20110615
  Receipt Date: 20110615
  Transmission Date: 20111010
  Serious: Yes (Hospitalization)
  Sender: FDA-Public Use
  Company Number: None

PATIENT
  Sex: Female
  Weight: 44 kg

DRUGS (3)
  1. TAXOL [Suspect]
     Dosage: 68 MG
     Dates: end: 20110608
  2. CARBOPLATIN [Suspect]
     Dosage: 184 MG
     Dates: end: 20110608
  3. HYDROCODONE [Concomitant]

REACTIONS (4)
  - FAECALOMA [None]
  - FAECAL INCONTINENCE [None]
  - CONSTIPATION [None]
  - PROCTALGIA [None]
